FAERS Safety Report 20723101 (Version 1)
Quarter: 2022Q2

REPORT INFORMATION
  Report Type: Spontaneous
  Country: IE (occurrence: IE)
  Receive Date: 20220419
  Receipt Date: 20220419
  Transmission Date: 20220720
  Serious: Yes (Hospitalization, Other)
  Sender: FDA-Public Use
  Company Number: IE-SUN PHARMACEUTICAL INDUSTRIES LTD-2022R1-333157

PATIENT
  Age: 32 Year
  Sex: Male

DRUGS (9)
  1. LETROZOLE [Suspect]
     Active Substance: LETROZOLE
     Indication: Medical anabolic therapy
     Dosage: UNK
     Route: 065
  2. LEVOTHYROXINE [Suspect]
     Active Substance: LEVOTHYROXINE
     Indication: Product used for unknown indication
     Dosage: UNK
     Route: 065
  3. CLENBUTEROL [Suspect]
     Active Substance: CLENBUTEROL
     Indication: Medical anabolic therapy
     Dosage: UNK
     Route: 065
  4. DROMOSTANOLONE [Suspect]
     Active Substance: DROMOSTANOLONE
     Indication: Medical anabolic therapy
     Dosage: UNK
     Route: 065
  5. FLUOXYMESTERONE [Suspect]
     Active Substance: FLUOXYMESTERONE
     Indication: Medical anabolic therapy
     Dosage: UNK
     Route: 065
  6. OXANDROLONE [Suspect]
     Active Substance: OXANDROLONE
     Indication: Medical anabolic therapy
     Dosage: UNK
     Route: 065
  7. MESTEROLONE [Suspect]
     Active Substance: MESTEROLONE
     Indication: Medical anabolic therapy
     Dosage: UNK
     Route: 065
  8. STANOZOLOL [Suspect]
     Active Substance: STANOZOLOL
     Indication: Medical anabolic therapy
     Dosage: UNK
     Route: 065
  9. TRENBOLONE [Suspect]
     Active Substance: TRENBOLONE
     Indication: Medical anabolic therapy
     Dosage: UNK
     Route: 065

REACTIONS (6)
  - Thyrotoxic periodic paralysis [Recovered/Resolved]
  - Electrocardiogram QT prolonged [Recovered/Resolved]
  - Myocardial injury [Recovered/Resolved]
  - Hypertransaminasaemia [Recovered/Resolved]
  - Hyperglycaemia [Recovered/Resolved]
  - Prescription drug used without a prescription [Unknown]
